FAERS Safety Report 7893206-0 (Version None)
Quarter: 2011Q4

REPORT INFORMATION
  Report Type: 
  Country: None (occurrence: None)
  Receive Date: 20111104
  Receipt Date: 20111028
  Transmission Date: 20120403
  Serious: Yes (Hospitalization)
  Sender: FDA-Public Use
  Company Number: PHHO2011AU07920

PATIENT
  Sex: Male

DRUGS (12)
  1. SUNITINIB MALATE [Suspect]
     Dosage: 50 MG, QD
     Dates: start: 20110507
  2. PREDNISOLONE [Concomitant]
  3. CALCIUM [Concomitant]
  4. NO TREATMENT RECEIVED [Suspect]
     Indication: RENAL CELL CARCINOMA
     Dosage: NO TREATMENT
     Route: 048
  5. MULTI-VITAMIN [Concomitant]
  6. PANTOPRAZOLE [Concomitant]
  7. ASPIRIN [Concomitant]
  8. ALPHAPRIL [Concomitant]
  9. SUNITINIB MALATE [Suspect]
     Indication: RENAL CELL CARCINOMA
     Dosage: UNK
     Route: 048
  10. PANAMAX [Concomitant]
  11. FISH OIL [Concomitant]
  12. VITAMIN D [Concomitant]

REACTIONS (1)
  - UPPER GASTROINTESTINAL HAEMORRHAGE [None]
